FAERS Safety Report 5056914-5 (Version None)
Quarter: 2006Q2

REPORT INFORMATION
  Report Type: 
  Country: None (occurrence: None)
  Receive Date: 20060620
  Receipt Date: 20050330
  Transmission Date: 20061013
  Serious: No
  Sender: FDA-Public Use
  Company Number: MK200503-0356-1

PATIENT
  Sex: Male

DRUGS (1)
  1. OPTIRAY 350 [Suspect]
     Indication: COMPUTERISED TOMOGRAM ABDOMEN
     Dosage: 75 TO 85 ML,ONCE
     Dates: start: 20050330, end: 20050330

REACTIONS (2)
  - DYSPHAGIA [None]
  - LARYNGEAL OEDEMA [None]
